FAERS Safety Report 4784808-9 (Version None)
Quarter: 2005Q3

REPORT INFORMATION
  Report Type: 
  Country: None (occurrence: None)
  Receive Date: 20050930
  Receipt Date: 20041004
  Transmission Date: 20060218
  Serious: Yes (Other)
  Sender: FDA-Public Use
  Company Number: PHBS2004IL13129

PATIENT
  Age: 55 Year
  Sex: Male

DRUGS (3)
  1. THALIDOMID [Concomitant]
     Route: 065
  2. DEXACORT [Concomitant]
     Route: 065
  3. ZOMETA [Suspect]
     Indication: MULTIPLE MYELOMA
     Dosage: 4 MG
     Route: 042
     Dates: start: 20030901, end: 20040301

REACTIONS (4)
  - DENTAL TREATMENT [None]
  - JAW DISORDER [None]
  - OSTEONECROSIS [None]
  - SURGERY [None]
